FAERS Safety Report 7293584-X (Version None)
Quarter: 2011Q1

REPORT INFORMATION
  Report Type: 
  Country: None (occurrence: None)
  Receive Date: 20110215
  Receipt Date: 20110209
  Transmission Date: 20110831
  Serious: Yes (Other)
  Sender: FDA-Public Use
  Company Number: US-PFIZER INC-US-WYE-H16798710

PATIENT
  Sex: Male
  Weight: 95.3 kg

DRUGS (6)
  1. PRISTIQ [Suspect]
     Dosage: 50 MG TABLET IN HALF PER PHYSICIAN
     Dates: start: 20100101, end: 20100701
  2. ULTRAM [Concomitant]
  3. GEODON [Suspect]
     Dosage: 80.0 MG, 1X/DAY
     Dates: start: 20100101
  4. DIOVAN HCT [Concomitant]
  5. PRISTIQ [Suspect]
     Indication: DEPRESSION
     Dosage: 50.0 MG, 1X/DAY
     Dates: start: 20100101, end: 20100101
  6. GEODON [Suspect]
     Indication: SCHIZOPHRENIA
     Dosage: 160.0 MG, 1X/DAY
     Route: 048
     Dates: start: 20100701, end: 20100101

REACTIONS (3)
  - BLOOD URINE PRESENT [None]
  - CHOKING [None]
  - SEROTONIN SYNDROME [None]
